FAERS Safety Report 9052667 (Version 1)
Quarter: 2013Q1

REPORT INFORMATION
  Report Type: Spontaneous
  Country: US (occurrence: US)
  Receive Date: 20130207
  Receipt Date: 20130207
  Transmission Date: 20140127
  Serious: No
  Sender: FDA-Public Use
  Company Number: US-009507513-1301USA014728

PATIENT
  Age: 65 Year
  Sex: Female

DRUGS (1)
  1. ZETIA [Suspect]
     Indication: LIPIDS DECREASED
     Route: 048

REACTIONS (1)
  - Rash [Unknown]
